FAERS Safety Report 23377329 (Version 1)
Quarter: 2024Q1

REPORT INFORMATION
  Report Type: Report from Study
  Country: US (occurrence: US)
  Receive Date: 20240108
  Receipt Date: 20240108
  Transmission Date: 20240409
  Serious: Yes (Other)
  Sender: FDA-Public Use
  Company Number: US-ABBVIE-5572324

PATIENT
  Sex: Female

DRUGS (1)
  1. QULIPTA [Suspect]
     Active Substance: ATOGEPANT
     Indication: Migraine
     Dosage: AT HOUR OF SLEEP BEDTIME, TYPICALLY BETWEEN 8 TO 10 PM?FORM STRENGTH: 10 MILLIGRAM
     Route: 048

REACTIONS (3)
  - Migraine-triggered seizure [Unknown]
  - Dizziness [Unknown]
  - Somnolence [Unknown]
